FAERS Safety Report 7738581-2 (Version None)
Quarter: 2011Q3

REPORT INFORMATION
  Report Type: 
  Country: None (occurrence: None)
  Receive Date: 20110908
  Receipt Date: 20110825
  Transmission Date: 20111222
  Serious: Yes (Hospitalization)
  Sender: FDA-Public Use
  Company Number: ES-GENENTECH-323825

PATIENT
  Sex: Male
  Weight: 80 kg

DRUGS (4)
  1. CYCLOPHOSPHAMIDE [Suspect]
     Indication: CHRONIC LYMPHOCYTIC LEUKAEMIA
     Dosage: 175 MG/M2, Q28D
     Route: 042
     Dates: start: 20110701, end: 20110703
  2. FLUDARABINE PHOSPHATE [Suspect]
     Indication: CHRONIC LYMPHOCYTIC LEUKAEMIA
     Dosage: 25 MG/M2, Q28D
     Route: 042
     Dates: start: 20110701, end: 20110703
  3. RITUXIMAB [Suspect]
     Indication: CHRONIC LYMPHOCYTIC LEUKAEMIA
     Dosage: 375 MG/M2, Q28D
     Route: 042
     Dates: start: 20110629, end: 20110630
  4. GRANULOKINE [Concomitant]
     Indication: NEUTROPENIA
     Dosage: 30 A?G, UNK
     Route: 058
     Dates: start: 20110713, end: 20110727

REACTIONS (5)
  - HAEMORRHOIDAL HAEMORRHAGE [None]
  - FEBRILE NEUTROPENIA [None]
  - ESCHERICHIA INFECTION [None]
  - ANAEMIA [None]
  - PLATELET COUNT DECREASED [None]
